FAERS Safety Report 25050862 (Version 3)
Quarter: 2025Q1

REPORT INFORMATION
  Report Type: Spontaneous
  Country: US (occurrence: US)
  Receive Date: 20250307
  Receipt Date: 20250326
  Transmission Date: 20250409
  Serious: Yes (Hospitalization, Other)
  Sender: UCB
  Company Number: US-UCBSA-2025012906

PATIENT
  Age: 28 Year
  Sex: Male

DRUGS (2)
  1. BRIVIACT [Suspect]
     Active Substance: BRIVARACETAM
     Indication: Seizure
     Dosage: 20 MILLILITER, 2X/DAY (BID)
     Route: 048
     Dates: start: 2023
  2. BRIVIACT [Suspect]
     Active Substance: BRIVARACETAM
     Dosage: 20 MILLILITER, 2X/DAY (BID)
     Route: 048
     Dates: end: 20250304

REACTIONS (5)
  - Pneumonia [Recovered/Resolved]
  - Product supply issue [Unknown]
  - Wrong technique in product usage process [Unknown]
  - Therapy interrupted [Unknown]
  - Product availability issue [Unknown]

NARRATIVE: CASE EVENT DATE: 20250115
